FAERS Safety Report 6821442-0 (Version None)
Quarter: 2010Q3

REPORT INFORMATION
  Report Type: 
  Country: None (occurrence: None)
  Receive Date: 20100707
  Receipt Date: 20080924
  Transmission Date: 20110219
  Serious: No
  Sender: FDA-Public Use
  Company Number: US-PFIZER INC-2008081141

PATIENT
  Sex: Male

DRUGS (1)
  1. ZOLOFT [Suspect]
     Indication: PANIC DISORDER
     Dates: start: 20080501, end: 20080901

REACTIONS (4)
  - ABNORMAL SENSATION IN EYE [None]
  - ASTHENOPIA [None]
  - EYE DISORDER [None]
  - EYE PAIN [None]
